FAERS Safety Report 5120999-8 (Version None)
Quarter: 2006Q4

REPORT INFORMATION
  Report Type: 
  Country: None (occurrence: None)
  Receive Date: 20061005
  Receipt Date: 20060925
  Transmission Date: 20070319
  Serious: Yes (Other)
  Sender: FDA-Public Use
  Company Number: PHRM2006FR02623

PATIENT
  Age: 70 Year
  Sex: Male

DRUGS (2)
  1. ZOMETA [Suspect]
     Indication: METASTASES TO BONE
     Dosage: 4 MG, QMO
     Route: 042
     Dates: start: 20041201, end: 20060411
  2. ELOXATIN [Suspect]
     Indication: PROSTATE CANCER METASTATIC
     Dates: start: 20060101

REACTIONS (7)
  - DENTAL CARIES [None]
  - HYPOAESTHESIA ORAL [None]
  - OSTEONECROSIS [None]
  - PAIN IN JAW [None]
  - SCINTIGRAPHY [None]
  - TOOTH EXTRACTION [None]
  - TOOTHACHE [None]
